FAERS Safety Report 8001208-9 (Version None)
Quarter: 2011Q4

REPORT INFORMATION
  Report Type: 
  Country: None (occurrence: None)
  Receive Date: 20111222
  Receipt Date: 20111219
  Transmission Date: 20120403
  Serious: Yes (Death)
  Sender: FDA-Public Use
  Company Number: US-PFIZER INC-2011308896

PATIENT
  Age: 51 Year
  Sex: Female

DRUGS (3)
  1. IBUPROFEN [Suspect]
  2. METHADONE [Suspect]
  3. ARIPIPRAZOLE [Suspect]

REACTIONS (1)
  - INTENTIONAL DRUG MISUSE [None]
